FAERS Safety Report 6467156-0 (Version None)
Quarter: 2009Q4

REPORT INFORMATION
  Report Type: 
  Country: None (occurrence: None)
  Receive Date: 20091125
  Receipt Date: 20091111
  Transmission Date: 20100525
  Serious: Yes (Death, Hospitalization)
  Sender: FDA-Public Use
  Company Number: A-NJ2009-25355

PATIENT
  Age: 2 Year
  Sex: Male

DRUGS (3)
  1. TRACLEER [Suspect]
     Indication: PULMONARY ARTERIAL HYPERTENSION
     Dosage: 20 MG, BID, ORAL; 20 MG, BID, ORAL; 8 MG, BID, ORAL
     Route: 048
     Dates: end: 20090512
  2. TRACLEER [Suspect]
     Indication: PULMONARY ARTERIAL HYPERTENSION
     Dosage: 20 MG, BID, ORAL; 20 MG, BID, ORAL; 8 MG, BID, ORAL
     Route: 048
     Dates: start: 20080930
  3. TRACLEER [Suspect]
     Indication: PULMONARY ARTERIAL HYPERTENSION
     Dosage: 20 MG, BID, ORAL; 20 MG, BID, ORAL; 8 MG, BID, ORAL
     Route: 048
     Dates: start: 20090528

REACTIONS (8)
  - CARDIO-RESPIRATORY ARREST [None]
  - HEPATIC ISCHAEMIA [None]
  - LIVER INJURY [None]
  - OFF LABEL USE [None]
  - PULMONARY HYPERTENSIVE CRISIS [None]
  - RENAL INJURY [None]
  - RENAL ISCHAEMIA [None]
  - RESPIRATORY FAILURE [None]
